FAERS Safety Report 19800868 (Version 2)
Quarter: 2021Q4

REPORT INFORMATION
  Report Type: Report from Study
  Country: DE (occurrence: DE)
  Receive Date: 20210907
  Receipt Date: 20211229
  Transmission Date: 20220303
  Serious: Yes (Hospitalization)
  Sender: FDA-Public Use
  Company Number: DE-PFIZER INC-2021329282

PATIENT
  Age: 72 Year
  Sex: Male

DRUGS (10)
  1. METHOTREXATE [Suspect]
     Active Substance: METHOTREXATE
     Indication: Product used for unknown indication
     Dosage: 17.5 MG
     Dates: end: 202101
  2. XELJANZ [Suspect]
     Active Substance: TOFACITINIB CITRATE
     Indication: Product used for unknown indication
     Dosage: 11 MG
     Dates: end: 20210130
  3. BISOPROLOL [Concomitant]
     Active Substance: BISOPROLOL
     Dosage: 10 MILLIGRAM, QD (5 MG, 2X/DAY )
  4. CHOLECALCIFEROL [Concomitant]
     Active Substance: CHOLECALCIFEROL
     Dosage: 20000 INTERNATIONAL UNIT, CYCLE (20000 IU, CYCLIC )
  5. XARELTO [Concomitant]
     Active Substance: RIVAROXABAN
     Dosage: 20 MILLIGRAM, QD (20 MG, 1X/DAY )
  6. ENALAPRIL [Concomitant]
     Active Substance: ENALAPRIL
     Dosage: 5 MILLIGRAM, QD (1/2 DF DAILY)
  7. METAMIZOLE [Concomitant]
     Active Substance: METAMIZOLE
     Dosage: 2000 MILLIGRAM, QD (500 MG, 4X/DAY)
  8. PANTOPRAZOLE [Concomitant]
     Active Substance: PANTOPRAZOLE
     Dosage: 40 MILLIGRAM, QD (40 MG, 1X/DAY)
  9. CALCIUM [Concomitant]
     Active Substance: CALCIUM
     Dosage: 1000 MILLIGRAM, QD (500 MG, 2X/DAY)
  10. PREDNISOLONE [Concomitant]
     Active Substance: PREDNISOLONE
     Dosage: 10 MILLIGRAM, QD (10 MG, 1X/DAY  )

REACTIONS (5)
  - Respiratory failure [Recovered/Resolved]
  - COVID-19 pneumonia [Recovered/Resolved]
  - Superinfection bacterial [Recovered/Resolved]
  - Lung infiltration [Recovered/Resolved]
  - Pyrexia [Recovered/Resolved]

NARRATIVE: CASE EVENT DATE: 20210203
